FAERS Safety Report 18716411 (Version 1)
Quarter: 2021Q1

REPORT INFORMATION
  Report Type: Spontaneous
  Country: US (occurrence: US)
  Receive Date: 20210108
  Receipt Date: 20210108
  Transmission Date: 20210419
  Serious: Yes (Hospitalization, Other)
  Sender: FDA-Public Use
  Company Number: US-STRIDES ARCOLAB LIMITED-2021SP000212

PATIENT
  Age: 58 Year
  Sex: Male

DRUGS (5)
  1. ALEMTUZUMAB [Suspect]
     Active Substance: ALEMTUZUMAB
     Indication: RENAL TRANSPLANT
     Dosage: UNK, INDUCTION IMMUNOSUPPRESSANT THERAPY
     Route: 065
     Dates: start: 201705, end: 2017
  2. MYCOPHENOLATE MOFETIL. [Suspect]
     Active Substance: MYCOPHENOLATE MOFETIL
     Indication: RENAL TRANSPLANT
     Dosage: UNK, MAINTENANCE IMMUNOSUPPRESSANT THERAPY
     Route: 065
     Dates: start: 2017
  3. TACROLIMUS. [Suspect]
     Active Substance: TACROLIMUS
     Indication: RENAL TRANSPLANT
     Dosage: UNK, MAINTENANCE IMMUNOSUPPRESSANT THERAPY
     Route: 065
     Dates: start: 2017
  4. METHYLPREDNISOLONE. [Suspect]
     Active Substance: METHYLPREDNISOLONE
     Indication: RENAL TRANSPLANT
     Dosage: UNK, INDUCTION IMMUNOSUPPRESSANT THERAPY
     Route: 065
     Dates: start: 201705, end: 2017
  5. PREDNISOLONE. [Suspect]
     Active Substance: PREDNISOLONE
     Indication: RENAL TRANSPLANT
     Dosage: UNK, INDUCTION AND MAINTENANCE IMMUNOSUPPRESSANT THERAPY
     Route: 065
     Dates: start: 201705

REACTIONS (3)
  - Muscle strain [Recovered/Resolved]
  - Nocardiosis [Recovered/Resolved]
  - Pulmonary nocardiosis [Recovered/Resolved]

NARRATIVE: CASE EVENT DATE: 2020
